FAERS Safety Report 10406909 (Version 1)
Quarter: 2014Q3

REPORT INFORMATION
  Report Type: Spontaneous
  Country: KP (occurrence: KP)
  Receive Date: 20140825
  Receipt Date: 20140825
  Transmission Date: 20150326
  Serious: Yes (Death)
  Sender: FDA-Public Use
  Company Number: KP-BRISTOL-MYERS SQUIBB COMPANY-21330907

PATIENT
  Age: 40 Year
  Sex: Female

DRUGS (1)
  1. STOCRIN [Suspect]
     Active Substance: EFAVIRENZ

REACTIONS (1)
  - Death [Fatal]
